FAERS Safety Report 15066605 (Version 2)
Quarter: 2018Q3

REPORT INFORMATION
  Report Type: Report from Study
  Country: BR (occurrence: BR)
  Receive Date: 20180626
  Receipt Date: 20180730
  Transmission Date: 20181010
  Serious: Yes (Other)
  Sender: FDA-Public Use
  Company Number: BR-UCBSA-2018028438

PATIENT
  Age: 15 Year
  Sex: Female
  Weight: 70 kg

DRUGS (4)
  1. LEVETIRACETAM. [Suspect]
     Active Substance: LEVETIRACETAM
     Indication: EPILEPSY
     Dosage: 500 MG, 2X/DAY (BID)
     Route: 048
     Dates: start: 201706
  2. CANNABIDIOL [Concomitant]
     Active Substance: CANNABIDIOL
     Indication: EPILEPSY
     Dosage: UNK
  3. FRISIUM [Concomitant]
     Active Substance: CLOBAZAM
     Indication: EPILEPSY
  4. COMPLEX B [Concomitant]
     Active Substance: CALCIUM PANTOTHENATE\CYANOCOBALAMIN\NIACINAMIDE\PYRIDOXINE HYDROCHLORIDE\RIBOFLAVIN\THIAMINE MONONITRATE
     Indication: VITAMIN SUPPLEMENTATION
     Dosage: UNK

REACTIONS (4)
  - Drug ineffective [Unknown]
  - Anger [Recovering/Resolving]
  - Nervousness [Recovering/Resolving]
  - Seizure [Not Recovered/Not Resolved]

NARRATIVE: CASE EVENT DATE: 201706
